FAERS Safety Report 12899587 (Version 1)
Quarter: 2016Q4

REPORT INFORMATION
  Report Type: Spontaneous
  Country: US (occurrence: US)
  Receive Date: 20161030
  Receipt Date: 20161030
  Transmission Date: 20170207
  Serious: No
  Sender: FDA-Public Use
  Company Number: None

PATIENT
  Age: 55 Year
  Sex: Female

DRUGS (3)
  1. AMLODIPINE [Concomitant]
     Active Substance: AMLODIPINE BESYLATE
  2. BUPROPION. [Suspect]
     Active Substance: BUPROPION
     Route: 048
     Dates: start: 20160930, end: 20161030
  3. LEVOTHYROXINE. [Concomitant]
     Active Substance: LEVOTHYROXINE

REACTIONS (4)
  - Night sweats [None]
  - Headache [None]
  - Product substitution issue [None]
  - Hot flush [None]

NARRATIVE: CASE EVENT DATE: 20161030
